FAERS Safety Report 18749009 (Version 2)
Quarter: 2023Q4

REPORT INFORMATION
  Report Type: Spontaneous
  Country: US (occurrence: US)
  Receive Date: 20210116
  Receipt Date: 20231014
  Transmission Date: 20240109
  Serious: Yes (Hospitalization, Other)
  Sender: FDA-Public Use
  Company Number: US-AUROBINDO-AUR-APL-2021-000456

PATIENT
  Age: 15 Year
  Sex: Male

DRUGS (18)
  1. CLONAZEPAM [Interacting]
     Active Substance: CLONAZEPAM
     Indication: Detoxification
     Dosage: 2 MILLIGRAM
     Route: 048
  2. CLONAZEPAM [Interacting]
     Active Substance: CLONAZEPAM
     Indication: Sleep disorder
  3. CLONIDINE [Interacting]
     Active Substance: CLONIDINE
     Indication: Detoxification
     Dosage: 0.1 MILLIGRAM, 3 TIMES A DAY
     Route: 048
  4. CLONIDINE [Interacting]
     Active Substance: CLONIDINE
     Indication: Agitation
  5. CLONIDINE [Interacting]
     Active Substance: CLONIDINE
     Indication: Heart rate irregular
  6. LOPERAMIDE [Interacting]
     Active Substance: LOPERAMIDE
     Indication: Detoxification
     Dosage: 2 MILLIGRAM, TWO TIMES A DAY
     Route: 048
  7. LOPERAMIDE [Interacting]
     Active Substance: LOPERAMIDE
     Indication: Diarrhoea
  8. TRAMADOL [Interacting]
     Active Substance: TRAMADOL\TRAMADOL HYDROCHLORIDE
     Indication: Detoxification
     Dosage: 600 MILLIGRAM (FOR FIRST 5 DAYS)
     Route: 048
  9. TRAMADOL [Interacting]
     Active Substance: TRAMADOL\TRAMADOL HYDROCHLORIDE
     Dosage: 400 GRAM (FOR THE NEXT 5 DAYS)
     Route: 048
  10. TRAMADOL [Interacting]
     Active Substance: TRAMADOL\TRAMADOL HYDROCHLORIDE
     Dosage: 300 GRAM
     Route: 048
  11. TRAMADOL [Interacting]
     Active Substance: TRAMADOL\TRAMADOL HYDROCHLORIDE
     Dosage: 200 GRAM (FOR THE NEXT 5 DAYS)
     Route: 048
  12. TRAMADOL [Interacting]
     Active Substance: TRAMADOL\TRAMADOL HYDROCHLORIDE
     Dosage: 100 GRAM (FOR THE LAST 10 DAYS)
     Route: 048
  13. TRAMADOL [Suspect]
     Active Substance: TRAMADOL\TRAMADOL HYDROCHLORIDE
     Indication: Detoxification
     Dosage: 300 MILLIGRAM (FOR FIRST FIVE DAYS)
     Route: 042
  14. CHLORPHENIRAMINE [Interacting]
     Active Substance: CHLORPHENIRAMINE
     Indication: Detoxification
     Dosage: 4 MILLIGRAM
     Route: 048
  15. CHLORPHENIRAMINE [Interacting]
     Active Substance: CHLORPHENIRAMINE
     Indication: Influenza like illness
  16. CANNABIS SATIVA SUBSP. INDICA TOP [Concomitant]
     Active Substance: CANNABIS SATIVA SUBSP. INDICA TOP
     Indication: Product used for unknown indication
     Dosage: UNK UNK, ONCE A DAY
     Route: 065
  17. HEROIN [Concomitant]
     Active Substance: DIAMORPHINE
     Indication: Product used for unknown indication
     Dosage: UNK UNK, ONCE A DAY
     Route: 065
  18. HEROIN [Concomitant]
     Active Substance: DIAMORPHINE
     Indication: Product used for unknown indication
     Dosage: 1 MILLILITER (ONCE A MONTH)
     Route: 065

REACTIONS (3)
  - Aggression [Unknown]
  - Drug interaction [Unknown]
  - Behaviour disorder [Unknown]

NARRATIVE: CASE EVENT DATE: 20151204
